FAERS Safety Report 4885987-5 (Version None)
Quarter: 2006Q1

REPORT INFORMATION
  Report Type: 
  Country: None (occurrence: None)
  Receive Date: 20060118
  Receipt Date: 20060118
  Transmission Date: 20060701
  Serious: Yes (Hospitalization)
  Sender: FDA-Public Use
  Company Number: None

PATIENT
  Age: 59 Year
  Sex: Male
  Weight: 79 kg

DRUGS (8)
  1. WARFARIN 5MG DUPONT [Suspect]
     Indication: FACTOR V LEIDEN MUTATION
     Dosage: 5MG/2.5MG MON/REST OF WEEK PO
     Route: 048
     Dates: start: 20020220, end: 20060117
  2. WARFARIN 5MG DUPONT [Suspect]
     Indication: PERIPHERAL VASCULAR DISORDER
     Dosage: 5MG/2.5MG MON/REST OF WEEK PO
     Route: 048
     Dates: start: 20020220, end: 20060117
  3. FERROUS SULFATE TAB [Concomitant]
  4. OXYCODONE [Concomitant]
  5. ACETAMINOPHEN [Concomitant]
  6. TERAZOSIN [Concomitant]
  7. SIMVASTATIN [Concomitant]
  8. PHENYTOIN SODIUM CAP [Concomitant]

REACTIONS (6)
  - DUODENITIS [None]
  - GASTRITIS [None]
  - GASTROINTESTINAL HAEMORRHAGE [None]
  - HYPOAESTHESIA [None]
  - INTERNATIONAL NORMALISED RATIO INCREASED [None]
  - PAIN IN EXTREMITY [None]
